FAERS Safety Report 7631737-9 (Version None)
Quarter: 2011Q3

REPORT INFORMATION
  Report Type: 
  Country: None (occurrence: None)
  Receive Date: 20110725
  Receipt Date: 20110224
  Transmission Date: 20111222
  Serious: No
  Sender: FDA-Public Use
  Company Number: US-BRISTOL-MYERS SQUIBB COMPANY-15568603

PATIENT
  Age: 88 Year
  Sex: Male
  Weight: 88 kg

DRUGS (3)
  1. WARFARIN SODIUM [Suspect]
     Indication: CEREBROVASCULAR ACCIDENT
     Dates: start: 20090101
  2. ALLOPURINOL [Concomitant]
  3. AVODART [Concomitant]
     Indication: PROSTATIC SPECIFIC ANTIGEN

REACTIONS (2)
  - DIZZINESS [None]
  - FOOT DEFORMITY [None]
